FAERS Safety Report 15337680 (Version 1)
Quarter: 2018Q3

REPORT INFORMATION
  Report Type: Spontaneous
  Country: US (occurrence: US)
  Receive Date: 20180831
  Receipt Date: 20180831
  Transmission Date: 20181010
  Serious: No
  Sender: FDA-Public Use
  Company Number: US-JNJFOC-20180820325

PATIENT
  Age: 74 Year
  Sex: Female
  Weight: 54.89 kg

DRUGS (2)
  1. ZYRTEC [Suspect]
     Active Substance: CETIRIZINE HYDROCHLORIDE
     Indication: MULTIPLE ALLERGIES
     Dosage: BEFORE BED
     Route: 048
     Dates: start: 20180814, end: 20180814
  2. ZYRTEC [Suspect]
     Active Substance: CETIRIZINE HYDROCHLORIDE
     Indication: RHINORRHOEA
     Dosage: BEFORE BED
     Route: 048
     Dates: start: 20180814, end: 20180814

REACTIONS (1)
  - Drug ineffective [Unknown]
